FAERS Safety Report 25136055 (Version 1)
Quarter: 2025Q1

REPORT INFORMATION
  Report Type: Spontaneous
  Country: CN (occurrence: CN)
  Receive Date: 20250328
  Receipt Date: 20250328
  Transmission Date: 20250409
  Serious: Yes (Other)
  Sender: BEIGENE
  Company Number: CN-BEIGENE-BGN-2025-004711

PATIENT
  Age: 72 Year
  Weight: 58 kg

DRUGS (12)
  1. TISLELIZUMAB [Suspect]
     Active Substance: TISLELIZUMAB
     Indication: Oropharyngeal cancer
  2. TISLELIZUMAB [Suspect]
     Active Substance: TISLELIZUMAB
  3. TISLELIZUMAB [Suspect]
     Active Substance: TISLELIZUMAB
     Route: 041
  4. TISLELIZUMAB [Suspect]
     Active Substance: TISLELIZUMAB
     Route: 041
  5. TISLELIZUMAB [Suspect]
     Active Substance: TISLELIZUMAB
  6. TISLELIZUMAB [Suspect]
     Active Substance: TISLELIZUMAB
  7. TISLELIZUMAB [Suspect]
     Active Substance: TISLELIZUMAB
     Route: 041
  8. TISLELIZUMAB [Suspect]
     Active Substance: TISLELIZUMAB
     Route: 041
  9. CETUXIMAB [Suspect]
     Active Substance: CETUXIMAB
     Indication: Oropharyngeal cancer
  10. CETUXIMAB [Suspect]
     Active Substance: CETUXIMAB
     Route: 041
  11. CETUXIMAB [Suspect]
     Active Substance: CETUXIMAB
  12. CETUXIMAB [Suspect]
     Active Substance: CETUXIMAB
     Route: 041

REACTIONS (1)
  - Myelosuppression [Unknown]
